FAERS Safety Report 19724349 (Version 1)
Quarter: 2021Q3

REPORT INFORMATION
  Report Type: Spontaneous
  Country: NZ (occurrence: NZ)
  Receive Date: 20210819
  Receipt Date: 20210819
  Transmission Date: 20211014
  Serious: Yes (Hospitalization, Other)
  Sender: FDA-Public Use
  Company Number: NZ-ROCHE-2891880

PATIENT
  Age: 4 Year
  Sex: Female

DRUGS (4)
  1. RITUXIMAB. [Suspect]
     Active Substance: RITUXIMAB
     Indication: OPTIC NEURITIS
     Route: 065
     Dates: start: 2001
  2. CYCLOPHOSPHAMIDE. [Concomitant]
     Active Substance: CYCLOPHOSPHAMIDE
     Dosage: PULSE THERAPY WITH MMF
  3. BETAFERON [Concomitant]
     Active Substance: INTERFERON BETA-1B
  4. MYCOPHENOLATE MOFETIL. [Suspect]
     Active Substance: MYCOPHENOLATE MOFETIL
     Indication: ACUTE DISSEMINATED ENCEPHALOMYELITIS
     Route: 065

REACTIONS (5)
  - Neutropenia [Unknown]
  - Angiopathy [Unknown]
  - Sepsis [Unknown]
  - Off label use [Unknown]
  - Tremor [Unknown]

NARRATIVE: CASE EVENT DATE: 2004
